FAERS Safety Report 5782074-9 (Version None)
Quarter: 2008Q2

REPORT INFORMATION
  Report Type: 
  Country: None (occurrence: None)
  Receive Date: 20080623
  Receipt Date: 20080602
  Transmission Date: 20081010
  Serious: No
  Sender: FDA-Public Use
  Company Number: US-JNJFOC-20080405270

PATIENT
  Sex: Female
  Weight: 58.97 kg

DRUGS (3)
  1. INVEGA [Suspect]
     Indication: BIPOLAR I DISORDER
     Route: 048
  2. LAMICTAL [Concomitant]
     Indication: BIPOLAR I DISORDER
  3. XANAX [Concomitant]
     Indication: BIPOLAR I DISORDER

REACTIONS (2)
  - BLOOD PROLACTIN INCREASED [None]
  - MENSTRUAL DISORDER [None]
